FAERS Safety Report 5490830-X (Version None)
Quarter: 2007Q4

REPORT INFORMATION
  Report Type: 
  Country: None (occurrence: None)
  Receive Date: 20071019
  Receipt Date: 20071008
  Transmission Date: 20080405
  Serious: Yes (Other)
  Sender: FDA-Public Use
  Company Number: GB-ROCHE-524694

PATIENT
  Age: 87 Year
  Sex: Female

DRUGS (2)
  1. ROCALTROL [Suspect]
     Indication: CALCIUM DEFICIENCY
     Route: 065
  2. ROCALTROL [Suspect]
     Route: 065

REACTIONS (4)
  - BLOOD CREATININE INCREASED [None]
  - DIARRHOEA [None]
  - GLOMERULAR FILTRATION RATE DECREASED [None]
  - NAUSEA [None]
